FAERS Safety Report 22234889 (Version 1)
Quarter: 2023Q2

REPORT INFORMATION
  Report Type: Spontaneous
  Country: US (occurrence: None)
  Receive Date: 20230419
  Receipt Date: 20230419
  Transmission Date: 20230721
  Serious: Yes (Death)
  Sender: FDA-Public Use
  Company Number: None

PATIENT
  Age: 81 Year
  Sex: Male
  Weight: 100.24 kg

DRUGS (25)
  1. ABIRATERONE [Suspect]
     Active Substance: ABIRATERONE
     Indication: Prostate cancer
     Dosage: FREQUENCY : DAILY;?
     Route: 048
     Dates: start: 20220527
  2. AFLUZOSIN [Concomitant]
  3. ALLEGRA [Concomitant]
     Active Substance: FEXOFENADINE HYDROCHLORIDE
  4. AMITRIPTYLINE [Concomitant]
  5. AMLODIPINE [Concomitant]
  6. ASPIRIN EC LOW [Concomitant]
  7. CALCIUM CARBONATE [Concomitant]
  8. DILTIAZEM [Concomitant]
  9. FELCAINDE [Concomitant]
  10. KLOR-CON [Concomitant]
     Active Substance: POTASSIUM CHLORIDE
  11. LUTEIN [Concomitant]
  12. MAXZIDE [Concomitant]
     Active Substance: HYDROCHLOROTHIAZIDE\TRIAMTERENE
  13. MULTIVITAMIN [Concomitant]
  14. NORCO [Concomitant]
  15. PEPCID [Concomitant]
     Active Substance: FAMOTIDINE
  16. POTASSIUM CHLORIDE [Concomitant]
     Active Substance: POTASSIUM CHLORIDE
  17. PREDNISONE [Concomitant]
     Active Substance: PREDNISONE
  18. TEKTURNA [Concomitant]
     Active Substance: ALISKIREN HEMIFUMARATE
  19. TERAZOSIN [Concomitant]
  20. TIZANIDINE [Concomitant]
  21. TRIAMCINOLONE [Concomitant]
  22. TYLENOL [Concomitant]
  23. VITAMIN C [Concomitant]
     Active Substance: ASCORBIC ACID
  24. VOLTAREN [Concomitant]
     Active Substance: DICLOFENAC SODIUM
  25. ZETIA [Concomitant]
     Active Substance: EZETIMIBE

REACTIONS (1)
  - Death [None]
